FAERS Safety Report 19943568 (Version 1)
Quarter: 2021Q4

REPORT INFORMATION
  Report Type: Spontaneous
  Country: DE (occurrence: DE)
  Receive Date: 20211012
  Receipt Date: 20211012
  Transmission Date: 20220303
  Serious: Yes (Hospitalization)
  Sender: FDA-Public Use
  Company Number: DE-ADRED-04615-01

PATIENT
  Age: 83 Year
  Sex: Female
  Weight: 70 kg

DRUGS (1)
  1. VENLAFAXINE [Suspect]
     Active Substance: VENLAFAXINE HYDROCHLORIDE
     Indication: Product used for unknown indication
     Dosage: UNK, NK NK, NK

REACTIONS (7)
  - Agitation [Unknown]
  - Tachypnoea [Unknown]
  - Dyspnoea [Unknown]
  - Anxiety [Unknown]
  - Hot flush [Unknown]
  - Palpitations [Unknown]
  - Hyperhidrosis [Unknown]
